FAERS Safety Report 21529021 (Version 1)
Quarter: 2022Q4

REPORT INFORMATION
  Report Type: Spontaneous
  Country: US (occurrence: US)
  Receive Date: 20221031
  Receipt Date: 20221031
  Transmission Date: 20230112
  Serious: No
  Sender: FDA-Public Use
  Company Number: US-KOWA PHARMACEUTICALS-2022KOW00014

PATIENT
  Sex: Female

DRUGS (3)
  1. SEGLENTIS [Suspect]
     Active Substance: CELECOXIB\TRAMADOL HYDROCHLORIDE
     Dosage: 2 TABLETS, 1X/DAY (TAKING 2 PILLS AT NIGHT)
  2. SEGLENTIS [Suspect]
     Active Substance: CELECOXIB\TRAMADOL HYDROCHLORIDE
     Dosage: 2 TABLETS, 1X/DAY IN MORNING (SWITCHED TO 2 MORNING, 1 AT NIGHT)
  3. SEGLENTIS [Suspect]
     Active Substance: CELECOXIB\TRAMADOL HYDROCHLORIDE
     Dosage: 1 TABLETS, 1X/DAY AT NIGHT (SWITCHED TO 2 MORNING, 1 AT NIGHT)

REACTIONS (2)
  - Sleep disorder [Recovered/Resolved]
  - Off label use [Not Recovered/Not Resolved]
